FAERS Safety Report 12821529 (Version 1)
Quarter: 2016Q4

REPORT INFORMATION
  Report Type: Report from Study
  Country: US (occurrence: US)
  Receive Date: 20161007
  Receipt Date: 20161007
  Transmission Date: 20170207
  Serious: Yes (Other)
  Sender: FDA-Public Use
  Company Number: US-ROCHE-1836752

PATIENT
  Age: 51 Year
  Sex: Female
  Weight: 58.7 kg

DRUGS (5)
  1. VELIPARIB [Suspect]
     Active Substance: VELIPARIB
     Dosage: ON DAYS 1-21 (CYCLE REPEATED EVERY 21 DAYS FOR 6 COURSES)?COURSE ID 6
     Route: 048
     Dates: start: 20131107, end: 20131107
  2. BEVACIZUMAB [Suspect]
     Active Substance: BEVACIZUMAB
     Dosage: OVER 30-90 MINUTES ON DAY 1 (CYCLE REPEATS EVERY 21 DAYS FOR 16 COURSES)?SAME DOSE FORM COURSE ID 9
     Route: 042
     Dates: start: 20140109
  3. VELIPARIB [Suspect]
     Active Substance: VELIPARIB
     Indication: OVARIAN EPITHELIAL CANCER
     Dosage: ON DAYS 1-21 (CYCLE REPEATED EVERY 21 DAYS FOR 6 COURSES)?SAME DOSE FORM COURSE ID 1 TO 4
     Route: 048
     Dates: start: 20130725
  4. VELIPARIB [Suspect]
     Active Substance: VELIPARIB
     Dosage: ON DAYS 1-21 (CYCLE REPEATED EVERY 21 DAYS FOR 6 COURSES)?COURSE ID 5
     Route: 048
     Dates: start: 20131017
  5. BEVACIZUMAB [Suspect]
     Active Substance: BEVACIZUMAB
     Indication: OVARIAN EPITHELIAL CANCER
     Dosage: OVER 30-90 MINUTES ON DAY 1 (CYCLE REPEATS EVERY 21 DAYS FOR 16 COURSES)?SAME DOSE FORM COURSE ID 2
     Route: 042
     Dates: start: 20130815

REACTIONS (3)
  - Neutrophil count decreased [Unknown]
  - White blood cell count decreased [Unknown]
  - Blood bilirubin increased [Unknown]
